FAERS Safety Report 11888239 (Version 1)
Quarter: 2016Q1

REPORT INFORMATION
  Report Type: Report from Study
  Country: CZ (occurrence: CZ)
  Receive Date: 20160105
  Receipt Date: 20160105
  Transmission Date: 20160526
  Serious: Yes (Death, Other)
  Sender: FDA-Public Use
  Company Number: PHHY2015CZ130046

PATIENT
  Age: 63 Year
  Sex: Male

DRUGS (6)
  1. NO TREATMENT RECEIVED [Suspect]
     Active Substance: UNSPECIFIED INGREDIENT
     Indication: PRODUCT USED FOR UNKNOWN INDICATION
     Dosage: UNK
     Route: 065
  2. PAZOPANIB [Suspect]
     Active Substance: PAZOPANIB
     Dosage: 400 MG, UNK
     Route: 065
     Dates: start: 20131123, end: 20131220
  3. PAZOPANIB [Suspect]
     Active Substance: PAZOPANIB
     Dosage: 400 MG, UNK
     Route: 065
     Dates: start: 20140412, end: 20141031
  4. PAZOPANIB [Suspect]
     Active Substance: PAZOPANIB
     Dosage: 200 MG, UNK
     Route: 065
     Dates: start: 20141101, end: 20150305
  5. PAZOPANIB [Suspect]
     Active Substance: PAZOPANIB
     Dosage: 200 MG, UNK
     Route: 065
     Dates: start: 20131221, end: 20140411
  6. PAZOPANIB [Suspect]
     Active Substance: PAZOPANIB
     Indication: RENAL CANCER METASTATIC
     Dosage: 200 MG, UNK
     Route: 065
     Dates: start: 20131025, end: 20131122

REACTIONS (3)
  - Malignant neoplasm progression [Unknown]
  - Liver function test increased [Unknown]
  - Death [Fatal]

NARRATIVE: CASE EVENT DATE: 20131220
